FAERS Safety Report 21700784 (Version 1)
Quarter: 2022Q4

REPORT INFORMATION
  Report Type: Spontaneous
  Country: US (occurrence: None)
  Receive Date: 20221208
  Receipt Date: 20221208
  Transmission Date: 20230113
  Serious: Yes (Other)
  Sender: FDA-Public Use
  Company Number: 2022A400739

PATIENT

DRUGS (1)
  1. LYNPARZA [Suspect]
     Active Substance: OLAPARIB
     Route: 048

REACTIONS (17)
  - Thrombocytopenia [Unknown]
  - Neutropenia [Unknown]
  - Fatigue [Unknown]
  - Anaemia [Unknown]
  - Leukopenia [Unknown]
  - Nausea [Unknown]
  - Alanine aminotransferase [Unknown]
  - Aspartate aminotransferase [Unknown]
  - Constipation [Unknown]
  - Blood creatinine increased [Unknown]
  - Vomiting [Unknown]
  - Headache [Unknown]
  - Dyspnoea [Unknown]
  - Myalgia [Unknown]
  - Therapy partial responder [Unknown]
  - Disease progression [Unknown]
  - No adverse event [Unknown]
